FAERS Safety Report 7519121-X (Version None)
Quarter: 2011Q2

REPORT INFORMATION
  Report Type: 
  Country: None (occurrence: None)
  Receive Date: 20110602
  Receipt Date: 20110519
  Transmission Date: 20111010
  Serious: Yes (Other)
  Sender: FDA-Public Use
  Company Number: PHHY2010CA66522

PATIENT
  Sex: Female

DRUGS (2)
  1. ZOLEDRONIC ACID (RECLAST) [Suspect]
     Dosage: 5 MG
     Route: 042
     Dates: start: 20110308
  2. ZOLEDRONIC ACID (RECLAST) [Suspect]
     Indication: OSTEOPOROSIS
     Dosage: 5 MG
     Route: 042
     Dates: start: 20100201

REACTIONS (6)
  - FALL [None]
  - DIARRHOEA [None]
  - LIMB DISCOMFORT [None]
  - ABNORMAL FAECES [None]
  - OSTEOARTHRITIS [None]
  - PAIN [None]
